FAERS Safety Report 12176095 (Version 2)
Quarter: 2016Q1

REPORT INFORMATION
  Report Type: Spontaneous
  Country: PH (occurrence: PH)
  Receive Date: 20160314
  Receipt Date: 20160322
  Transmission Date: 20160526
  Serious: Yes (Life-Threatening, Hospitalization)
  Sender: FDA-Public Use
  Company Number: CHPA2016PH002979

PATIENT
  Age: 15 Year
  Sex: Male

DRUGS (1)
  1. EXCEDRIN EXTRA STRENGTH [Suspect]
     Active Substance: ACETAMINOPHEN\ASPIRIN\CAFFEINE
     Indication: PAIN
     Dosage: 1 DF, UNK
     Route: 065
     Dates: start: 20160301

REACTIONS (7)
  - Pharyngeal oedema [Unknown]
  - Hypersensitivity [Unknown]
  - Dyspnoea [Unknown]
  - Swelling face [Unknown]
  - Eye swelling [Unknown]
  - Lip swelling [Unknown]
  - Feeling abnormal [Unknown]
